FAERS Safety Report 5295500-9 (Version None)
Quarter: 2007Q2

REPORT INFORMATION
  Report Type: 
  Country: None (occurrence: None)
  Receive Date: 20070405
  Receipt Date: 20070323
  Transmission Date: 20071010
  Serious: Yes (Other)
  Sender: FDA-Public Use
  Company Number: 2006131793

PATIENT
  Age: 48 Year
  Sex: Female

DRUGS (1)
  1. ROGAINE [Suspect]
     Indication: ALOPECIA
     Dosage: 1 ML DAILY (1 MK, 1 IN 1 D), TOPICAL
     Route: 061
     Dates: start: 20060301, end: 20061101

REACTIONS (7)
  - CARDIAC FAILURE [None]
  - CHEST DISCOMFORT [None]
  - DRUG INEFFECTIVE [None]
  - FLUID RETENTION [None]
  - HEART RATE IRREGULAR [None]
  - HYPERTENSION [None]
  - TACHYCARDIA [None]
